FAERS Safety Report 24709861 (Version 1)
Quarter: 2024Q4

REPORT INFORMATION
  Report Type: Report from Study
  Country: US (occurrence: US)
  Receive Date: 20241209
  Receipt Date: 20241209
  Transmission Date: 20250114
  Serious: Yes (Life-Threatening, Other)
  Sender: ABBVIE
  Company Number: US-ABBVIE-6035598

PATIENT
  Age: 69 Year
  Sex: Female

DRUGS (1)
  1. HUMIRA [Suspect]
     Active Substance: ADALIMUMAB
     Indication: Crohn^s disease
     Dosage: FORM STRENGTH: 40 MILLIGRAM
     Route: 058
     Dates: start: 20240812

REACTIONS (10)
  - Depression [Unknown]
  - Memory impairment [Unknown]
  - Suicidal ideation [Unknown]
  - Abnormal behaviour [Not Recovered/Not Resolved]
  - Fear [Not Recovered/Not Resolved]
  - Anger [Unknown]
  - Agitation [Unknown]
  - Unevaluable event [Unknown]
  - Mental disorder [Unknown]
  - Thinking abnormal [Unknown]

NARRATIVE: CASE EVENT DATE: 20240101
